FAERS Safety Report 11961906 (Version 3)
Quarter: 2018Q3

REPORT INFORMATION
  Report Type: Spontaneous
  Country: US (occurrence: US)
  Receive Date: 20160126
  Receipt Date: 20180920
  Transmission Date: 20181010
  Serious: No
  Sender: FDA-Public Use
  Company Number: US-BIOGEN-2016BI00180932

PATIENT
  Sex: Female

DRUGS (1)
  1. AVONEX [Suspect]
     Active Substance: INTERFERON BETA-1A
     Indication: MULTIPLE SCLEROSIS
     Route: 030
     Dates: start: 20050420

REACTIONS (6)
  - Memory impairment [Recovered/Resolved]
  - Emotional disorder [Unknown]
  - Amnesia [Unknown]
  - Confusional state [Unknown]
  - Anxiety [Unknown]
  - Dementia [Unknown]
